FAERS Safety Report 18890558 (Version 1)
Quarter: 2021Q1

REPORT INFORMATION
  Report Type: Spontaneous
  Country: IL (occurrence: IL)
  Receive Date: 20210214
  Receipt Date: 20210214
  Transmission Date: 20210420
  Serious: Yes (Congenital Anomaly, Other)
  Sender: FDA-Public Use
  Company Number: IL-SUN PHARMACEUTICAL INDUSTRIES LTD-2021R1-278859

PATIENT
  Sex: Male

DRUGS (1)
  1. DEXAMETHASONE. [Suspect]
     Active Substance: DEXAMETHASONE
     Indication: PRODUCT USED FOR UNKNOWN INDICATION
     Route: 065

REACTIONS (6)
  - Ventricular failure [Recovering/Resolving]
  - Pneumothorax [Unknown]
  - Pulmonary hypoplasia [Recovered/Resolved]
  - Patent ductus arteriosus [Unknown]
  - Oxygen saturation decreased [Unknown]
  - Congestive cardiomyopathy [Recovered/Resolved]
